FAERS Safety Report 6088788-8 (Version None)
Quarter: 2009Q1

REPORT INFORMATION
  Report Type: 
  Country: None (occurrence: None)
  Receive Date: 20090218
  Receipt Date: 20090218
  Transmission Date: 20090719
  Serious: Yes (Other)
  Sender: FDA-Public Use
  Company Number: None

PATIENT
  Age: 64 Year
  Sex: Female
  Weight: 86.1834 kg

DRUGS (3)
  1. PROVIGIL [Suspect]
     Indication: SOMNOLENCE
     Dosage: 1 A DAY
     Dates: start: 20080801, end: 20081101
  2. PROVIGIL [Suspect]
     Indication: SOMNOLENCE
     Dosage: 1 A DAY
     Dates: start: 20080101, end: 20090201
  3. PROVIGIL [Suspect]

REACTIONS (4)
  - DRUG HYPERSENSITIVITY [None]
  - EYE DISORDER [None]
  - TIC [None]
  - VISION BLURRED [None]
